FAERS Safety Report 19634629 (Version 1)
Quarter: 2021Q3

REPORT INFORMATION
  Report Type: Spontaneous
  Country: JP (occurrence: JP)
  Receive Date: 20210730
  Receipt Date: 20210730
  Transmission Date: 20211014
  Serious: Yes (Death, Life-Threatening, Hospitalization, Other)
  Sender: FDA-Public Use
  Company Number: JP-MACLEODS PHARMACEUTICALS US LTD-MAC2021032048

PATIENT

DRUGS (3)
  1. BEZAFIBRATE [Concomitant]
     Active Substance: BEZAFIBRATE
     Indication: PRIMARY BILIARY CHOLANGITIS
     Dosage: 400 MILLIGRAM, QD
     Route: 065
  2. URSODEOXYCHOLIC ACID [Concomitant]
     Active Substance: URSODIOL
     Indication: PRIMARY BILIARY CHOLANGITIS
     Dosage: 600 MILLIGRAM, QD
     Route: 065
  3. LEVOFLOXACIN 500 MG [Suspect]
     Active Substance: LEVOFLOXACIN
     Indication: JAUNDICE
     Dosage: 500 MILLIGRAM, QD
     Route: 065

REACTIONS (8)
  - Condition aggravated [Fatal]
  - Cholestasis [Fatal]
  - Drug-induced liver injury [Fatal]
  - Hepatitis E [Fatal]
  - Primary biliary cholangitis [Fatal]
  - Hepatic necrosis [Fatal]
  - Hepatic cirrhosis [Fatal]
  - Jaundice [Fatal]
